FAERS Safety Report 9711000 (Version 1)
Quarter: 2013Q4

REPORT INFORMATION
  Report Type: Spontaneous
  Country: US (occurrence: US)
  Receive Date: 20131126
  Receipt Date: 20131126
  Transmission Date: 20140711
  Serious: Yes (Hospitalization, Other)
  Sender: FDA-Public Use
  Company Number: US-BRISTOL-MYERS SQUIBB COMPANY-19124437

PATIENT
  Age: 54 Year
  Sex: Male
  Weight: 74.83 kg

DRUGS (11)
  1. BYETTA [Suspect]
     Indication: TYPE 2 DIABETES MELLITUS
     Dosage: 5MCG BID ABOUT FOUR MONTHS ?DOSE INCREASED:10MCG BID
     Route: 058
  2. METFORMIN [Concomitant]
  3. LANTUS [Concomitant]
     Dosage: 5UNITS QPM
  4. MIRTAZAPINE [Concomitant]
     Dosage: QPM
  5. BENAZEPRIL HCL [Concomitant]
  6. SIMVASTATIN [Concomitant]
  7. METOPROLOL TARTRATE [Concomitant]
  8. FAMOTIDINE [Concomitant]
  9. VITAMIN D [Concomitant]
  10. AMLODIPINE BESYLATE [Concomitant]
  11. BAYER ASPIRIN [Concomitant]

REACTIONS (2)
  - Pancreatitis [Unknown]
  - Weight decreased [Unknown]
